FAERS Safety Report 16028340 (Version 1)
Quarter: 2019Q1

REPORT INFORMATION
  Report Type: Report from Study
  Country: DE (occurrence: DE)
  Receive Date: 20190304
  Receipt Date: 20190304
  Transmission Date: 20190418
  Serious: Yes (Death)
  Sender: FDA-Public Use
  Company Number: DE-ROCHE-1984304

PATIENT
  Age: 69 Year
  Sex: Female

DRUGS (7)
  1. RAMIPRIL. [Concomitant]
     Active Substance: RAMIPRIL
  2. ZOPICLON [Concomitant]
     Active Substance: ZOPICLONE
  3. TOCILIZUMAB. [Suspect]
     Active Substance: TOCILIZUMAB
     Indication: RHEUMATOID ARTHRITIS
     Route: 065
  4. METHOTREXATE. [Suspect]
     Active Substance: METHOTREXATE
     Indication: RHEUMATOID ARTHRITIS
     Route: 065
  5. PROLIA [Concomitant]
     Active Substance: DENOSUMAB
  6. PREDNISOLON [Concomitant]
     Active Substance: PREDNISOLONE
  7. TILIDIN [Concomitant]
     Active Substance: NALOXONE HYDROCHLORIDE\TILIDINE HYDROCHLORIDE

REACTIONS (3)
  - Tooth extraction [Recovered/Resolved]
  - Periodontitis [Unknown]
  - Sudden death [Fatal]

NARRATIVE: CASE EVENT DATE: 20170410
